FAERS Safety Report 15092616 (Version 1)
Quarter: 2018Q2

REPORT INFORMATION
  Report Type: Report from Study
  Country: US (occurrence: US)
  Receive Date: 20180629
  Receipt Date: 20180629
  Transmission Date: 20180711
  Serious: No
  Sender: FDA-Public Use
  Company Number: US-AMGEN-USASL2017123924

PATIENT
  Age: 73 Year
  Sex: Female
  Weight: 72.56 kg

DRUGS (8)
  1. VITAMIN D [Concomitant]
     Active Substance: CHOLECALCIFEROL
     Dosage: 1000 UNIT, QD
     Route: 048
  2. BENAZEPRIL HCL [Concomitant]
     Active Substance: BENAZEPRIL HYDROCHLORIDE
     Dosage: 5 MG, QD
     Route: 048
  3. HYDROCHLOROTHIAZIDE. [Concomitant]
     Active Substance: HYDROCHLOROTHIAZIDE
     Dosage: 25 MG, QD
     Route: 048
     Dates: start: 20160627
  4. PROLIA [Suspect]
     Active Substance: DENOSUMAB
     Indication: PRODUCT USED FOR UNKNOWN INDICATION
     Dosage: 60 MG, Q6MO
     Route: 058
  5. CALCIUM [Concomitant]
     Active Substance: CALCIUM
     Dosage: 500 MG, BID
     Route: 048
  6. CIPRO [Concomitant]
     Active Substance: CIPROFLOXACIN HYDROCHLORIDE
     Dosage: 500 MG, BID
     Route: 048
     Dates: start: 20161213
  7. BENTYL [Concomitant]
     Active Substance: DICYCLOMINE HYDROCHLORIDE
     Indication: ABDOMINAL PAIN
     Dosage: UNK UNK, Q6H
     Route: 048
  8. ARIMIDEX [Concomitant]
     Active Substance: ANASTROZOLE
     Dosage: 1 MG, QD
     Route: 048

REACTIONS (1)
  - Off label use [Unknown]
